FAERS Safety Report 9566519 (Version 1)
Quarter: 2013Q3

REPORT INFORMATION
  Report Type: Spontaneous
  Country: US (occurrence: US)
  Receive Date: 20130930
  Receipt Date: 20130930
  Transmission Date: 20140515
  Serious: Yes (Other)
  Sender: FDA-Public Use
  Company Number: US-BAXTER-2013BAX038348

PATIENT
  Sex: 0

DRUGS (1)
  1. MILRINONE LACTATE IN 5% DEXTROSE INJECTION [Suspect]
     Indication: CARDIAC OPERATION
     Route: 065

REACTIONS (1)
  - Supraventricular tachycardia [Unknown]
